FAERS Safety Report 8346449-6 (Version None)
Quarter: 2012Q2

REPORT INFORMATION
  Report Type: 
  Country: None (occurrence: None)
  Receive Date: 20120509
  Receipt Date: 20120508
  Transmission Date: 20120825
  Serious: Yes (Hospitalization, Other)
  Sender: FDA-Public Use
  Company Number: JP-PFIZER INC-2012029617

PATIENT
  Age: 40 Year
  Sex: Female

DRUGS (5)
  1. LYRICA [Suspect]
     Indication: CERVICAL ROOT PAIN
     Dosage: 50 MG, 1X/DAY
     Route: 048
     Dates: start: 20120128
  2. NEUROTROPIN [Concomitant]
     Indication: SPINAL OSTEOARTHRITIS
     Dosage: 2 DF, UNK
  3. DICLOFENAC SODIUM [Suspect]
     Indication: CERVICAL ROOT PAIN
     Dosage: 37.5 MG, 2X/DAY
     Route: 048
     Dates: start: 20120128
  4. MUCOSTA [Concomitant]
     Dosage: 1 DF, UNK
  5. LANSOPRAZOLE [Concomitant]
     Dosage: 15 MG, UNK
     Route: 048

REACTIONS (3)
  - CYANOSIS [None]
  - DYSPHORIA [None]
  - RESPIRATORY ARREST [None]
